FAERS Safety Report 4964696-8 (Version None)
Quarter: 2006Q1

REPORT INFORMATION
  Report Type: 
  Country: None (occurrence: None)
  Receive Date: 20060331
  Receipt Date: 20060316
  Transmission Date: 20060701
  Serious: Yes (Other)
  Sender: FDA-Public Use
  Company Number: GB200601005238

PATIENT
  Age: 59 Year
  Sex: Female
  Weight: 67 kg

DRUGS (5)
  1. ZYPREXA [Suspect]
  2. DEPAKOTE [Concomitant]
  3. DIAZEPAM [Concomitant]
  4. LACTULOSE [Concomitant]
  5. ZUCLOPENTHIXOL (ZUCLOPENTHIXOL) [Concomitant]

REACTIONS (2)
  - AGRANULOCYTOSIS [None]
  - NEUTROPENIA [None]
